FAERS Safety Report 9735041 (Version 3)
Quarter: 2014Q1

REPORT INFORMATION
  Report Type: Spontaneous
  Country: JP (occurrence: None)
  Receive Date: 20131204
  Receipt Date: 20140205
  Transmission Date: 20141002
  Serious: Yes (Life-Threatening)
  Sender: FDA-Public Use
  Company Number: SYM-2013-13524

PATIENT
  Age: 0 Day
  Sex: Male
  Weight: 43 kg

DRUGS (6)
  1. FLUOROURACIL (FLUOROURACIL) (FLUOROURACIL) [Suspect]
     Indication: OESOPHAGEAL CARCINOMA
     Dates: start: 20130402, end: 20130406
  2. CISPLATIN (CISPLATIN) (CISPLATIN) [Suspect]
     Indication: OESOPHAGEAL CARCINOMA
     Dates: start: 20130402
  3. ONETAXOTERE [Suspect]
     Indication: OESOPHAGEAL CARCINOMA
     Route: 041
     Dates: start: 20130402, end: 20130402
  4. PROEMEND (FOSAPREPITANT MEGLUMINE) (FOSAPREPITANT MEGLUMINE) [Concomitant]
  5. DEXART (DEXAMETHASONE SODIUM PHOSPHATE) (DEXAMETHASONE SODIUM PHOSPHATE) [Concomitant]
  6. ALOXI (PALONOSETRON HYDROCHLORIDE) (PALONOSETRON HYDROCHLORIDE) [Concomitant]

REACTIONS (5)
  - Haematotoxicity [None]
  - Tumour haemorrhage [None]
  - White blood cell count decreased [None]
  - Platelet count decreased [None]
  - Neutrophil count decreased [None]
